FAERS Safety Report 9129950 (Version 1)
Quarter: 2013Q1

REPORT INFORMATION
  Report Type: Spontaneous
  Country: IT (occurrence: IT)
  Receive Date: 20130228
  Receipt Date: 20130228
  Transmission Date: 20140127
  Serious: Yes (Hospitalization)
  Sender: FDA-Public Use
  Company Number: JP-ASTRAZENECA-2013SE00001

PATIENT
  Age: 74 Year
  Sex: Female

DRUGS (4)
  1. BLOPRESS [Suspect]
     Route: 048
     Dates: start: 20111108, end: 20121107
  2. AMLODIPINE BESILATE [Suspect]
     Route: 048
     Dates: start: 20111108, end: 20121107
  3. SIMVASTATIN [Concomitant]
     Route: 065
  4. METFORAL [Concomitant]
     Route: 065

REACTIONS (5)
  - Hypotension [Recovering/Resolving]
  - Renal failure acute [Recovering/Resolving]
  - Vomiting [Recovering/Resolving]
  - Asthenia [Recovering/Resolving]
  - Weight decreased [Recovering/Resolving]
